FAERS Safety Report 7491182-6 (Version None)
Quarter: 2011Q2

REPORT INFORMATION
  Report Type: 
  Country: None (occurrence: None)
  Receive Date: 20110519
  Receipt Date: 20110506
  Transmission Date: 20111010
  Serious: Yes (Other)
  Sender: FDA-Public Use
  Company Number: BR-SANOFI-AVENTIS-2011SA028353

PATIENT
  Age: 8 Year
  Sex: Female
  Weight: 23 kg

DRUGS (2)
  1. LANTUS [Suspect]
     Indication: TYPE 1 DIABETES MELLITUS
     Route: 058
  2. LANTUS [Suspect]
     Route: 058

REACTIONS (5)
  - LETHARGY [None]
  - EPILEPSY [None]
  - HYPOGLYCAEMIC UNCONSCIOUSNESS [None]
  - CONVULSION [None]
  - HYPOGLYCAEMIA [None]
